FAERS Safety Report 5139962-6 (Version None)
Quarter: 2006Q4

REPORT INFORMATION
  Report Type: 
  Country: None (occurrence: None)
  Receive Date: 20061031
  Receipt Date: 20061023
  Transmission Date: 20070319
  Serious: Yes (Hospitalization)
  Sender: FDA-Public Use
  Company Number: FR-JNJFOC-20061005530

PATIENT
  Age: 48 Year
  Sex: Male

DRUGS (10)
  1. RISPERDAL CONSTA [Suspect]
     Indication: SCHIZOAFFECTIVE DISORDER
     Route: 030
  2. OFLOCET [Suspect]
     Indication: DRUG USE FOR UNKNOWN INDICATION
     Route: 048
  3. CLOPIXOL [Suspect]
     Indication: DRUG USE FOR UNKNOWN INDICATION
     Route: 030
  4. TERCIAN [Suspect]
     Indication: DRUG USE FOR UNKNOWN INDICATION
     Route: 048
  5. TERALITHE [Suspect]
     Route: 048
  6. TERALITHE [Suspect]
     Indication: DRUG USE FOR UNKNOWN INDICATION
     Route: 048
  7. RIVOTRIL [Concomitant]
     Indication: AGITATION
  8. LEPTICUR [Concomitant]
     Indication: DYSKINESIA
     Route: 030
  9. VITAMIN B1-B6 [Concomitant]
  10. SULFARLEM [Concomitant]

REACTIONS (1)
  - CEREBELLAR SYNDROME [None]
